FAERS Safety Report 4970817-3 (Version None)
Quarter: 2006Q2

REPORT INFORMATION
  Report Type: 
  Country: None (occurrence: None)
  Receive Date: 20060412
  Receipt Date: 20060222
  Transmission Date: 20061013
  Serious: Yes (Hospitalization)
  Sender: FDA-Public Use
  Company Number: JP-ROCHE-437883

PATIENT
  Age: 58 Year
  Sex: Male

DRUGS (5)
  1. PEGASYS [Suspect]
     Route: 058
     Dates: start: 20060209, end: 20060209
  2. PEGASYS [Suspect]
     Route: 058
     Dates: start: 20060216, end: 20060216
  3. PEGASYS [Suspect]
     Route: 058
     Dates: start: 20060227
  4. NU-LOTAN [Concomitant]
     Route: 048
     Dates: start: 20020615
  5. NORVASC [Concomitant]
     Route: 048
     Dates: start: 20020615

REACTIONS (2)
  - AGRANULOCYTOSIS [None]
  - PLATELET COUNT DECREASED [None]
